FAERS Safety Report 4736949-X (Version None)
Quarter: 2005Q3

REPORT INFORMATION
  Report Type: 
  Country: None (occurrence: None)
  Receive Date: 20050808
  Receipt Date: 20050803
  Transmission Date: 20060218
  Serious: Yes (Death)
  Sender: FDA-Public Use
  Company Number: 2005AP04235

PATIENT
  Age: 79 Year

DRUGS (1)
  1. MEROPENEM [Suspect]

REACTIONS (1)
  - HEPATIC FAILURE [None]
